FAERS Safety Report 4997923-1 (Version None)
Quarter: 2006Q2

REPORT INFORMATION
  Report Type: 
  Country: None (occurrence: None)
  Receive Date: 20060508
  Receipt Date: 20060426
  Transmission Date: 20061013
  Serious: Yes (Hospitalization, Other)
  Sender: FDA-Public Use
  Company Number: 2006057824

PATIENT
  Age: 57 Year
  Sex: Female
  Weight: 79.3795 kg

DRUGS (1)
  1. CELEBREX [Suspect]
     Indication: ARTHRITIS
     Dosage: 400 MG (200 MG, 2 IN 1 D),
     Dates: start: 20020101, end: 20040701

REACTIONS (3)
  - ARRHYTHMIA [None]
  - DEPRESSION [None]
  - MYOCARDIAL INFARCTION [None]
